FAERS Safety Report 23731727 (Version 2)
Quarter: 2024Q2

REPORT INFORMATION
  Report Type: Spontaneous
  Country: JP (occurrence: JP)
  Receive Date: 20240411
  Receipt Date: 20240620
  Transmission Date: 20240716
  Serious: Yes (Hospitalization)
  Sender: FDA-Public Use
  Company Number: JP-MYLANLABS-2024M1030518

PATIENT
  Age: 83 Year
  Sex: Male
  Weight: 62.5 kg

DRUGS (5)
  1. VANCOMYCIN HYDROCHLORIDE [Suspect]
     Active Substance: VANCOMYCIN HYDROCHLORIDE
     Indication: Meningitis
     Dosage: 500 MILLIGRAM, BID
     Route: 042
     Dates: start: 20240304, end: 20240314
  2. VANCOMYCIN HYDROCHLORIDE [Suspect]
     Active Substance: VANCOMYCIN HYDROCHLORIDE
     Dosage: 500 MILLIGRAM, BID
     Route: 042
     Dates: start: 20240319, end: 20240319
  3. MEROPENEM [Concomitant]
     Active Substance: MEROPENEM
     Indication: Meningitis
     Dosage: UNK
     Route: 042
     Dates: start: 20240304, end: 20240314
  4. CEFTRIAXONE [Concomitant]
     Active Substance: CEFTRIAXONE\CEFTRIAXONE SODIUM
     Indication: Meningitis
     Dosage: UNK
     Route: 042
     Dates: start: 20240314
  5. LINEZOLID [Concomitant]
     Active Substance: LINEZOLID
     Indication: Meningitis
     Dosage: UNK
     Route: 042
     Dates: start: 20240314, end: 20240318

REACTIONS (1)
  - Renal disorder [Recovering/Resolving]

NARRATIVE: CASE EVENT DATE: 20240319
